FAERS Safety Report 6274816-3 (Version None)
Quarter: 2009Q3

REPORT INFORMATION
  Report Type: 
  Country: None (occurrence: None)
  Receive Date: 20090721
  Receipt Date: 20090708
  Transmission Date: 20100115
  Serious: Yes (Other)
  Sender: FDA-Public Use
  Company Number: US-TEVA-199858USA

PATIENT

DRUGS (1)
  1. PROPOFOL [Suspect]
     Indication: COLONOSCOPY
     Dosage: 100 ML BOTTLES
     Route: 042
     Dates: start: 20090626, end: 20090626

REACTIONS (4)
  - PAIN [None]
  - PRODUCT CONTAMINATION MICROBIAL [None]
  - PYREXIA [None]
  - TREMOR [None]
